FAERS Safety Report 7690802-0 (Version None)
Quarter: 2011Q3

REPORT INFORMATION
  Report Type: 
  Country: None (occurrence: None)
  Receive Date: 20110818
  Receipt Date: 20110815
  Transmission Date: 20111222
  Serious: Yes (Hospitalization)
  Sender: FDA-Public Use
  Company Number: US-PFIZER INC-2011187403

PATIENT
  Sex: Female
  Weight: 74.8 kg

DRUGS (4)
  1. PREMARIN [Suspect]
     Indication: OFF LABEL USE
     Dosage: UNK, 2X/WEEK
     Route: 067
     Dates: start: 20110201, end: 20110101
  2. ZOCOR [Concomitant]
     Dosage: UNK
     Dates: start: 20050101
  3. PREMARIN [Suspect]
     Indication: VULVOVAGINAL DISCOMFORT
  4. TOPROL-XL [Concomitant]
     Dosage: UNK
     Dates: start: 20050101

REACTIONS (3)
  - NIGHT SWEATS [None]
  - DYSPNOEA [None]
  - SLEEP DISORDER [None]
